FAERS Safety Report 6656689-X (Version None)
Quarter: 2010Q1

REPORT INFORMATION
  Report Type: 
  Country: None (occurrence: None)
  Receive Date: 20100324
  Receipt Date: 20100310
  Transmission Date: 20100710
  Serious: Yes (Other)
  Sender: FDA-Public Use
  Company Number: 1-21884235

PATIENT
  Age: 77 Year
  Sex: Female

DRUGS (12)
  1. WARFARIN SODIUM [Suspect]
     Indication: THROMBOSIS PROPHYLAXIS
     Dosage: 14 MG / WEEK, ORAL
     Route: 048
  2. ERYTHROMYCIN [Suspect]
     Indication: CONJUNCTIVITIS
     Dosage: OPHTHALMIC
     Route: 047
  3. ALPRAZOLAM [Concomitant]
  4. CARVEDILOL [Concomitant]
  5. FUROSEMIDE [Concomitant]
  6. LEVOTHYROXINE SODIUM [Concomitant]
  7. LISINOPRIL [Concomitant]
  8. NITROGLYCERIN [Concomitant]
  9. POTASSIUM CHLORIDE [Concomitant]
  10. ACETAMINOPHEN WITH PROPOXYPHENE HCL TAB [Concomitant]
  11. SIMVASTATIN [Concomitant]
  12. TRAZODONE [Concomitant]

REACTIONS (3)
  - CONJUNCTIVITIS BACTERIAL [None]
  - DRUG INTERACTION [None]
  - INTERNATIONAL NORMALISED RATIO INCREASED [None]
